FAERS Safety Report 11797209 (Version 2)
Quarter: 2019Q1

REPORT INFORMATION
  Report Type: Spontaneous
  Country: US (occurrence: US)
  Receive Date: 20151203
  Receipt Date: 20190219
  Transmission Date: 20190417
  Serious: Yes (Other)
  Sender: FDA-Public Use
  Company Number: US-SA-2015SA193130

PATIENT
  Age: 17 Year
  Sex: Female

DRUGS (1)
  1. RENAGEL [Suspect]
     Active Substance: SEVELAMER HYDROCHLORIDE
     Indication: HYPERPHOSPHATAEMIA
     Dosage: 800 MG,TID
     Route: 065

REACTIONS (3)
  - Colon injury [Recovering/Resolving]
  - Crystal deposit intestine [Recovering/Resolving]
  - Ischaemia [Recovering/Resolving]
